FAERS Safety Report 9978579 (Version 1)
Quarter: 2014Q1

REPORT INFORMATION
  Report Type: Report from Study
  Country: US (occurrence: US)
  Receive Date: 20140306
  Receipt Date: 20140306
  Transmission Date: 20141002
  Serious: Yes (Other)
  Sender: FDA-Public Use
  Company Number: US-ABBVIE-13P-163-1171963-00

PATIENT
  Age: 30 Year
  Sex: Female
  Weight: 61.29 kg

DRUGS (14)
  1. HUMIRA [Suspect]
     Indication: CROHN^S DISEASE
     Route: 050
     Dates: start: 20070522, end: 20080217
  2. PRENATAL VITAMINS [Concomitant]
     Indication: PRODUCT USED FOR UNKNOWN INDICATION
     Dosage: 2 PILL
     Route: 048
     Dates: start: 20070522, end: 20080217
  3. EXPECTRA OMEGA [Concomitant]
     Indication: PRODUCT USED FOR UNKNOWN INDICATION
     Route: 048
     Dates: start: 20070522, end: 20080217
  4. COFFEE [Concomitant]
     Indication: PRODUCT USED FOR UNKNOWN INDICATION
     Dosage: 1 SERVING
     Route: 048
     Dates: start: 20070623, end: 20080217
  5. COFFEE [Concomitant]
     Dosage: 4.5 SERVING
     Route: 048
     Dates: start: 20070522, end: 20070622
  6. CAFFEINE [Concomitant]
     Indication: PRODUCT USED FOR UNKNOWN INDICATION
     Dosage: 1 SERVING
     Route: 048
     Dates: start: 20070522, end: 20070622
  7. TYLENOL [Concomitant]
     Indication: HEADACHE
     Dosage: 1 PILL
     Route: 048
     Dates: start: 20070522, end: 20070919
  8. AMOXICILLIN TRIHYDRATE AND POTASSIUM CLAVULAN [Concomitant]
     Indication: INFECTION PROPHYLAXIS
     Dosage: 2 PILL
     Route: 048
     Dates: start: 20071009, end: 20071025
  9. AMOXICILLIN TRIHYDRATE AND POTASSIUM CLAVULAN [Concomitant]
     Dosage: 2 PILL
     Route: 048
     Dates: start: 20070926, end: 20071004
  10. ANESTHESIA, ANY NOS [Concomitant]
     Indication: PRODUCT USED FOR UNKNOWN INDICATION
     Dosage: 1 SHOT
     Route: 050
     Dates: start: 20070927, end: 20070927
  11. VICODIN [Concomitant]
     Indication: CROHN^S DISEASE
     Dosage: 2 PILL
     Route: 048
     Dates: start: 20070926, end: 20070926
  12. VICODIN [Concomitant]
     Indication: PAIN
     Dosage: 1 PILL
     Route: 048
     Dates: start: 20070927, end: 20070927
  13. TUMS [Concomitant]
     Indication: DYSPEPSIA
     Dosage: 2 PILL
     Route: 048
     Dates: start: 20080203, end: 20080217
  14. FLULAVAL [Concomitant]
     Indication: INFLUENZA IMMUNISATION
     Dosage: 1 SHOT
     Route: 050
     Dates: start: 20071101, end: 20071101

REACTIONS (5)
  - Fistula [Unknown]
  - Abscess [Recovered/Resolved]
  - Respiratory tract infection [Unknown]
  - Respiratory tract infection [Recovered/Resolved]
  - Headache [Recovered/Resolved]
